FAERS Safety Report 6772268-8 (Version None)
Quarter: 2010Q2

REPORT INFORMATION
  Report Type: 
  Country: None (occurrence: None)
  Receive Date: 20100616
  Receipt Date: 20091208
  Transmission Date: 20101027
  Serious: No
  Sender: FDA-Public Use
  Company Number: US-ASTRAZENECA-2009SE30715

PATIENT
  Age: 2005 Day
  Sex: Male
  Weight: 23.6 kg

DRUGS (7)
  1. PULMICORT RESPULES [Suspect]
     Indication: ASTHMA
     Route: 055
  2. PULMICORT RESPULES [Suspect]
     Indication: NASOPHARYNGITIS
     Route: 055
  3. PULMICORT RESPULES [Suspect]
     Route: 055
  4. PULMICORT RESPULES [Suspect]
     Route: 055
  5. PULMICORT RESPULES [Suspect]
     Route: 055
  6. PULMICORT RESPULES [Suspect]
     Route: 055
  7. XOPENEX NEBULIZATION [Concomitant]
     Indication: ASTHMA

REACTIONS (2)
  - ASTHMA [None]
  - PNEUMONIA [None]
